FAERS Safety Report 8423655-3 (Version None)
Quarter: 2012Q2

REPORT INFORMATION
  Report Type: 
  Country: None (occurrence: None)
  Receive Date: 20120608
  Receipt Date: 20120607
  Transmission Date: 20120825
  Serious: Yes (Death, Other)
  Sender: FDA-Public Use
  Company Number: PHHY2012GB048733

PATIENT
  Age: 44 Year
  Sex: Female

DRUGS (2)
  1. AVASTIN [Suspect]
     Indication: BREAST CANCER METASTATIC
  2. PACLITAXEL [Suspect]
     Indication: BREAST CANCER METASTATIC

REACTIONS (3)
  - ACUTE HEPATIC FAILURE [None]
  - METASTASES TO LIVER [None]
  - HEPATIC CIRRHOSIS [None]
